FAERS Safety Report 25140487 (Version 1)
Quarter: 2025Q1

REPORT INFORMATION
  Report Type: Spontaneous
  Country: IN (occurrence: IN)
  Receive Date: 20250331
  Receipt Date: 20250331
  Transmission Date: 20250409
  Serious: Yes (Other)
  Sender: PFIZER
  Company Number: IN-PFIZER INC-PV202500033621

PATIENT
  Age: 42 Year
  Sex: Male

DRUGS (2)
  1. METHYLPREDNISOLONE SODIUM SUCCINATE [Suspect]
     Active Substance: METHYLPREDNISOLONE SODIUM SUCCINATE
     Indication: COVID-19
     Dosage: 100 MG, DAILY
     Route: 042
  2. PREDNISOLONE [Suspect]
     Active Substance: PREDNISOLONE
     Indication: COVID-19
     Dosage: 40 MG, 1X/DAY
     Route: 048

REACTIONS (6)
  - Immunodeficiency [Unknown]
  - Strongyloidiasis [Unknown]
  - Malabsorption [Unknown]
  - Hypoalbuminaemia [Unknown]
  - Iron deficiency anaemia [Unknown]
  - Off label use [Unknown]
